FAERS Safety Report 20331590 (Version 1)
Quarter: 2022Q1

REPORT INFORMATION
  Report Type: Spontaneous
  Country: FR (occurrence: FR)
  Receive Date: 20220113
  Receipt Date: 20220113
  Transmission Date: 20220423
  Serious: Yes (Other)
  Sender: FDA-Public Use
  Company Number: None

PATIENT
  Age: 71 Year
  Sex: Male

DRUGS (15)
  1. PACLITAXEL [Suspect]
     Active Substance: PACLITAXEL
     Indication: Neuroendocrine carcinoma
     Route: 041
     Dates: start: 20210323, end: 20210323
  2. TRASTUZUMAB [Suspect]
     Active Substance: TRASTUZUMAB
     Indication: Neuroendocrine carcinoma
     Dosage: TRASTUZUMAB  ((MAMMIFERE/HAMSTER/CELLULES CHO))
     Dates: start: 20210323, end: 20210323
  3. NOVORAPID [Concomitant]
     Active Substance: INSULIN ASPART
     Dosage: STRENGTH : 100 U/ML
  4. SILODOSIN [Concomitant]
     Active Substance: SILODOSIN
  5. IMOVANE [Concomitant]
     Active Substance: ZOPICLONE
     Dosage: SCORED FILM-COATED TABLET
  6. ALPRAZOLAM [Concomitant]
     Active Substance: ALPRAZOLAM
     Dosage: SCORED TABLET
  7. KARDEGIC [Concomitant]
     Active Substance: ASPIRIN DL-LYSINE
     Dosage: POWDER FOR ORAL SOLUTION IN SACHET-DOSE
  8. EUPANTOL [Concomitant]
     Active Substance: PANTOPRAZOLE SODIUM
  9. BISOPROLOL [Concomitant]
     Active Substance: BISOPROLOL
  10. LANTUS [Concomitant]
     Active Substance: INSULIN GLARGINE
  11. EZETIMIBE\SIMVASTATIN [Concomitant]
     Active Substance: EZETIMIBE\SIMVASTATIN
     Dosage: STRENGTH : 10 MG/20 MG
  12. ALFUZOSIN [Concomitant]
     Active Substance: ALFUZOSIN
  13. SPIRIVA [Concomitant]
     Active Substance: TIOTROPIUM BROMIDE MONOHYDRATE
  14. DAPAGLIFLOZIN [Concomitant]
     Active Substance: DAPAGLIFLOZIN
  15. MELATONIN [Concomitant]
     Active Substance: MELATONIN

REACTIONS (1)
  - Type I hypersensitivity [Recovered/Resolved]

NARRATIVE: CASE EVENT DATE: 20210323
